FAERS Safety Report 9880639 (Version 3)
Quarter: 2014Q2

REPORT INFORMATION
  Report Type: Spontaneous
  Country: IT (occurrence: None)
  Receive Date: 20140205
  Receipt Date: 20140404
  Transmission Date: 20141212
  Serious: Yes (Hospitalization)
  Sender: FDA-Public Use
  Company Number: AUR-APL-2014-00888

PATIENT
  Age: 59 Year
  Sex: Female

DRUGS (4)
  1. MIRTAZAPINE (MIRTAZAPINE) [Suspect]
     Indication: PARKINSON^S DISEASE
  2. MIRTAZAPINE (MIRTAZAPINE) [Suspect]
     Indication: OFF LABEL USE
  3. VALIUM (DIAZEPAM) [Suspect]
     Indication: PRODUCT USED FOR UNKNOWN INDICATION
     Dosage: 5 GTT, TOTAL), ORAL
     Route: 048
     Dates: start: 20120912, end: 20120912
  4. TAVOR (LORAZEPAM) [Concomitant]

REACTIONS (6)
  - Tremor [None]
  - Drug interaction [None]
  - Medication error [None]
  - Nervous system disorder [None]
  - Neurological symptom [None]
  - Contraindication to medical treatment [None]
